FAERS Safety Report 16154390 (Version 2)
Quarter: 2019Q2

REPORT INFORMATION
  Report Type: Spontaneous
  Country: CN (occurrence: CN)
  Receive Date: 20190403
  Receipt Date: 20190411
  Transmission Date: 20190711
  Serious: No
  Sender: FDA-Public Use
  Company Number: CN-BAYER-2019-057367

PATIENT
  Age: 8 Decade
  Sex: Female

DRUGS (1)
  1. BAYASPIRIN 100 MG [Suspect]
     Active Substance: ASPIRIN
     Indication: HYPERTENSION
     Dosage: 2 DF, QD
     Route: 048

REACTIONS (11)
  - Duodenitis [None]
  - Abdominal pain upper [None]
  - Pain [None]
  - Insomnia [None]
  - Product colour issue [None]
  - Abdominal discomfort [None]
  - Urticaria [None]
  - Product use in unapproved indication [None]
  - Headache [None]
  - Poor quality product administered [None]
  - Dizziness [None]

NARRATIVE: CASE EVENT DATE: 2019
